FAERS Safety Report 19959920 (Version 8)
Quarter: 2022Q3

REPORT INFORMATION
  Report Type: Report from Study
  Country: HK (occurrence: None)
  Receive Date: 20211015
  Receipt Date: 20220901
  Transmission Date: 20221027
  Serious: Yes (Hospitalization)
  Sender: FDA-Public Use
  Company Number: HK-ROCHE-2928412

PATIENT
  Age: 69 Year
  Sex: Male
  Weight: 49.7 kg

DRUGS (28)
  1. TIRAGOLUMAB [Suspect]
     Active Substance: TIRAGOLUMAB
     Indication: Lung cancer metastatic
     Dosage: DATE OF THE MOST RECENT DOSE OF STUDY DRUG PRIOR TO AE WAS 24/SEP/2021.
     Route: 042
     Dates: start: 20210715
  2. ATEZOLIZUMAB [Suspect]
     Active Substance: ATEZOLIZUMAB
     Indication: Lung cancer metastatic
     Dosage: DATE OF THE MOST RECENT DOSE OF STUDY DRUG PRIOR TO AE WAS 24/SEP/2021.
     Route: 041
     Dates: start: 20210715
  3. ATEZOLIZUMAB [Suspect]
     Active Substance: ATEZOLIZUMAB
     Indication: Lung cancer metastatic
     Dosage: DATE OF THE MOST RECENT DOSE OF STUDY DRUG PRIOR TO AE WAS 24/SEP/2021.
     Route: 041
     Dates: start: 20210715
  4. CARBOPLATIN [Suspect]
     Active Substance: CARBOPLATIN
     Indication: Lung cancer metastatic
     Dosage: DATE OF THE MOST RECENT DOSE OF STUDY DRUG PRIOR TO AE WAS 24/SEP/2021 (380 MG)
     Route: 042
     Dates: start: 20210715
  5. PEMETREXED [Suspect]
     Active Substance: PEMETREXED
     Indication: Lung cancer metastatic
     Dosage: DATE OF THE MOST RECENT DOSE OF STUDY DRUG PRIOR TO AE WAS 24/SEP/2021(750 MG).
     Route: 042
  6. AMLODIPINE [Concomitant]
     Active Substance: AMLODIPINE BESYLATE
     Indication: Hypertension
     Dates: start: 20201014
  7. ATENOLOL [Concomitant]
     Active Substance: ATENOLOL
     Indication: Hypertension
     Dates: start: 20201014
  8. ISOPHANE INSULIN [Concomitant]
     Active Substance: INSULIN NOS
     Indication: Diabetes mellitus
     Dates: start: 20201014
  9. FOLIC ACID [Concomitant]
     Active Substance: FOLIC ACID
     Dates: start: 20210618
  10. METOCLOPRAMIDE HYDROCHLORIDE [Concomitant]
     Active Substance: METOCLOPRAMIDE HYDROCHLORIDE
     Dates: start: 20210714
  11. ACETAMINOPHEN [Concomitant]
     Active Substance: ACETAMINOPHEN
     Dates: start: 20210714
  12. FLUOCINOLONE ACETONIDE [Concomitant]
     Active Substance: FLUOCINOLONE ACETONIDE
     Indication: Rash
     Dosage: DOSE: 0.0125%
     Route: 061
     Dates: start: 20210804
  13. UREA [Concomitant]
     Active Substance: UREA
     Indication: Rash
     Dosage: DOSE 10%
     Dates: start: 20210804
  14. HYPROMELLOSES [Concomitant]
     Active Substance: HYPROMELLOSES
     Dates: start: 20210805
  15. PREDNISOLONE ACETATE [Concomitant]
     Active Substance: PREDNISOLONE ACETATE
     Indication: Conjunctivitis
     Dosage: DOSE 1%
     Route: 047
     Dates: start: 20210915
  16. CHLORAMPHENICOL [Concomitant]
     Active Substance: CHLORAMPHENICOL
     Indication: Conjunctivitis
     Dosage: DOSE 0.5%
     Route: 047
     Dates: start: 20210916
  17. LISINOPRIL [Concomitant]
     Active Substance: LISINOPRIL
     Indication: Hypertension
     Dates: start: 20210916
  18. METFORMIN HYDROCHLORIDE [Concomitant]
     Active Substance: METFORMIN HYDROCHLORIDE
     Indication: Diabetes mellitus
     Dates: start: 20210916
  19. SIMVASTATIN [Concomitant]
     Active Substance: SIMVASTATIN
     Indication: Blood cholesterol decreased
     Dates: start: 20210916
  20. INSULIN NOS [Concomitant]
     Active Substance: INSULIN NOS
     Indication: Type 2 diabetes mellitus
     Dosage: ONGOING: YES
     Route: 058
     Dates: start: 20211004
  21. DEXTROSE [Concomitant]
     Active Substance: DEXTROSE
     Route: 042
     Dates: start: 20211004, end: 20211005
  22. DEXTROSE;NACL [Concomitant]
     Route: 042
     Dates: start: 20211004, end: 20211007
  23. DEXTROSE;NACL [Concomitant]
     Route: 042
     Dates: start: 20211005, end: 20211006
  24. DEXTROSE;NACL [Concomitant]
     Route: 042
     Dates: start: 20211006, end: 20211007
  25. DEXTROSE;NACL [Concomitant]
     Dosage: OTHER
     Route: 042
     Dates: start: 20211007, end: 20211008
  26. SENNA LEAF [Concomitant]
     Active Substance: SENNA LEAF
     Route: 048
     Dates: start: 20211008
  27. ACETYLCYSTEINE [Concomitant]
     Active Substance: ACETYLCYSTEINE
     Indication: Dysphonia
     Dosage: ONGOING: NO
     Route: 048
     Dates: start: 20211012, end: 20211104
  28. BROMHEXINE [Concomitant]
     Active Substance: BROMHEXINE
     Indication: Cough
     Dosage: DOSE: NO; ONGOING: NO
     Route: 048
     Dates: start: 20211012, end: 20211015

REACTIONS (1)
  - General physical health deterioration [Recovered/Resolved]

NARRATIVE: CASE EVENT DATE: 20211002
